FAERS Safety Report 6975117-8 (Version None)
Quarter: 2010Q3

REPORT INFORMATION
  Report Type: 
  Country: None (occurrence: None)
  Receive Date: 20100910
  Receipt Date: 20090205
  Transmission Date: 20110219
  Serious: No
  Sender: FDA-Public Use
  Company Number: US-WYE-H08119609

PATIENT
  Age: 39 Year
  Sex: Female

DRUGS (6)
  1. PRISTIQ [Suspect]
     Indication: BIPOLAR DISORDER
     Dosage: UNSPECIFIED
     Route: 048
     Dates: start: 20081201
  2. VITAMINS WITH MINERALS [Concomitant]
  3. VITAMIN B [Concomitant]
  4. ASCORBIC ACID [Concomitant]
  5. LITHIUM CARBONATE [Concomitant]
  6. FISH OIL, HYDROGENATED [Concomitant]

REACTIONS (3)
  - BLOOD CHOLESTEROL INCREASED [None]
  - BLOOD TRIGLYCERIDES INCREASED [None]
  - HIGH DENSITY LIPOPROTEIN INCREASED [None]
